FAERS Safety Report 9934595 (Version 1)
Quarter: 2014Q1

REPORT INFORMATION
  Report Type: Spontaneous
  Country: US (occurrence: US)
  Receive Date: 20140228
  Receipt Date: 20140228
  Transmission Date: 20141002
  Serious: No
  Sender: FDA-Public Use
  Company Number: US-ASTRAZENECA-2013SE79947

PATIENT
  Age: 75 Year
  Sex: Male
  Weight: 99.8 kg

DRUGS (7)
  1. METOPROLOL SUCCINATE ER [Suspect]
     Indication: HYPERTENSION
     Route: 048
  2. VYTORIN [Concomitant]
     Indication: BLOOD CHOLESTEROL
     Route: 048
  3. AMLODIPINE [Concomitant]
     Indication: BLOOD PRESSURE
     Route: 048
  4. ASPIRIN [Concomitant]
     Route: 048
  5. FOSAMAX [Concomitant]
     Indication: OSTEOARTHRITIS
     Route: 048
  6. METHENAMINE MANDELATE [Concomitant]
     Indication: CYSTITIS
     Route: 048
  7. UNSPECIFIED MEDICATION [Concomitant]
     Indication: BLOOD CHOLESTEROL INCREASED

REACTIONS (2)
  - Blood pressure inadequately controlled [Recovered/Resolved]
  - Drug ineffective [Unknown]
